FAERS Safety Report 23534504 (Version 3)
Quarter: 2024Q1

REPORT INFORMATION
  Report Type: Spontaneous
  Country: MY (occurrence: None)
  Receive Date: 20240217
  Receipt Date: 20240319
  Transmission Date: 20240410
  Serious: Yes (Death)
  Sender: FDA-Public Use
  Company Number: MY-ROCHE-3510870

PATIENT
  Sex: Female

DRUGS (11)
  1. MABTHERA [Suspect]
     Active Substance: RITUXIMAB
     Indication: Primary mediastinal large B-cell lymphoma
     Dosage: SUBSEQUENT DOSE 500 MG RECEIVED ON 20/DEC/2021, 10/JAN/2022, 07/FEB/2022, 07/MAR/2022, 08/MAR/2022,
     Route: 041
     Dates: start: 20210929, end: 20230331
  2. CYCLOPHOSPHAMIDE [Suspect]
     Active Substance: CYCLOPHOSPHAMIDE
     Indication: Primary mediastinal large B-cell lymphoma
     Dosage: SUBSEQUENT DOSE 1100 MG RECEIVED ON 29/NOV/2021
     Route: 042
     Dates: start: 20210908, end: 20220308
  3. DOXORUBICIN [Suspect]
     Active Substance: DOXORUBICIN
     Indication: Primary mediastinal large B-cell lymphoma
     Route: 042
     Dates: start: 20211129, end: 20220308
  4. PREDNISONE [Suspect]
     Active Substance: PREDNISONE
     Indication: Primary mediastinal large B-cell lymphoma
     Dosage: DAY 1 TO DAY 5?SUBSEQUENT DOSE 50 MG RECEIVED ON 29/NOV/2021
     Route: 048
     Dates: start: 20210908, end: 20220308
  5. VINCRISTINE [Suspect]
     Active Substance: VINCRISTINE
     Indication: Primary mediastinal large B-cell lymphoma
     Dosage: SUBSEQUENT DOSE 2 MG RECEIVED ON 29/NOV/2021
     Route: 042
     Dates: start: 20210908, end: 20220308
  6. ETOPOSIDE [Suspect]
     Active Substance: ETOPOSIDE
     Indication: Primary mediastinal large B-cell lymphoma
     Dosage: SUBSEQUENT DOSE 500 MG RECEIVED ON 20/DEC/2021, 10/JAN/2022, 07/FEB/2022, 07/MAR/2022, 08/MAR/2022,
     Route: 042
     Dates: start: 20210929, end: 20230331
  7. DEXAMETHASONE [Suspect]
     Active Substance: DEXAMETHASONE
     Indication: Primary mediastinal large B-cell lymphoma
     Dosage: SUBSEQUENT DOSE 500 MG RECEIVED ON 20/DEC/2021, 10/JAN/2022, 07/FEB/2022, 07/MAR/2022, 08/MAR/2022,
     Route: 042
     Dates: start: 20210929, end: 20230331
  8. CISPLATIN [Suspect]
     Active Substance: CISPLATIN
     Indication: Primary mediastinal large B-cell lymphoma
     Dosage: SUBSEQUENT DOSE 500 MG RECEIVED ON 08/FEB/2023, 03/MAR/2023
     Route: 042
     Dates: start: 20230118, end: 20230331
  9. CYTARABINE [Suspect]
     Active Substance: CYTARABINE
     Indication: Primary mediastinal large B-cell lymphoma
     Dosage: SUBSEQUENT DOSE 500 MG RECEIVED ON 08/FEB/2023, 03/MAR/2023
     Route: 042
     Dates: start: 20230118, end: 20230331
  10. PEMBROLIZUMAB [Suspect]
     Active Substance: PEMBROLIZUMAB
     Indication: Primary mediastinal large B-cell lymphoma
     Dosage: SUBSEQUENT DOSES 100 MG RECEIVED ON 18/SEP/2023, 11/OCT/2023
     Route: 042
     Dates: start: 20230821, end: 20231101
  11. EPIRUBICIN [Suspect]
     Active Substance: EPIRUBICIN
     Indication: Primary mediastinal large B-cell lymphoma
     Route: 042
     Dates: start: 20210908, end: 20220308

REACTIONS (5)
  - Metastases to lung [Fatal]
  - Hepatic lesion [Fatal]
  - Pancreatic neoplasm [Fatal]
  - Renal neoplasm [Fatal]
  - Off label use [Unknown]
